FAERS Safety Report 9195786 (Version 1)
Quarter: 2013Q1

REPORT INFORMATION
  Report Type: Spontaneous
  Country: US (occurrence: None)
  Receive Date: 20120703
  Receipt Date: 20120703
  Transmission Date: 20140127
  Serious: No
  Sender: FDA-Public Use
  Company Number: PHEH2012US010274

PATIENT
  Sex: Female
  Weight: 57.6 kg

DRUGS (2)
  1. GILENYA (FTY) CAPSULE [Concomitant]
     Route: 048
  2. VITAMIN D (ERGOCALIFEROL) CAPSULE [Concomitant]

REACTIONS (3)
  - Musculoskeletal stiffness [None]
  - Paraesthesia [None]
  - Vision blurred [None]
